FAERS Safety Report 26093552 (Version 2)
Quarter: 2025Q4

REPORT INFORMATION
  Report Type: Spontaneous
  Country: US (occurrence: US)
  Receive Date: 20251126
  Receipt Date: 20251224
  Transmission Date: 20260118
  Serious: No
  Sender: TAKEDA
  Company Number: US-TAKEDA-2025TUS104313

PATIENT
  Age: 27 Year
  Sex: Female
  Weight: 96 kg

DRUGS (2)
  1. VYVANSE [Suspect]
     Active Substance: LISDEXAMFETAMINE DIMESYLATE
     Indication: Attention deficit hyperactivity disorder
     Dosage: 40 MILLIGRAM, QD
     Dates: start: 202507
  2. VYVANSE [Suspect]
     Active Substance: LISDEXAMFETAMINE DIMESYLATE
     Dosage: 40 MILLIGRAM, QD
     Dates: start: 202507

REACTIONS (8)
  - Product quality issue [Unknown]
  - Heart rate increased [Unknown]
  - Fatigue [Unknown]
  - Dizziness [Unknown]
  - Decreased appetite [Unknown]
  - Dyspnoea [Unknown]
  - Asthenia [Unknown]
  - Product dose omission issue [Unknown]
